FAERS Safety Report 11689026 (Version 1)
Quarter: 2015Q4

REPORT INFORMATION
  Report Type: Report from Study
  Country: US (occurrence: US)
  Receive Date: 20151102
  Receipt Date: 20151102
  Transmission Date: 20160304
  Serious: Yes (Other)
  Sender: FDA-Public Use
  Company Number: US-ABBVIE-15K-163-1490053-00

PATIENT
  Sex: Female

DRUGS (1)
  1. HUMIRA [Suspect]
     Active Substance: ADALIMUMAB
     Indication: RHEUMATOID ARTHRITIS
     Route: 058

REACTIONS (7)
  - Shoulder operation [Recovered/Resolved]
  - Uterine cyst [Not Recovered/Not Resolved]
  - Carpal tunnel syndrome [Recovered/Resolved]
  - Knee arthroplasty [Recovered/Resolved]
  - Pain in extremity [Not Recovered/Not Resolved]
  - Joint arthroplasty [Recovered/Resolved]
  - Ocular hyperaemia [Not Recovered/Not Resolved]
